FAERS Safety Report 14445251 (Version 11)
Quarter: 2018Q3

REPORT INFORMATION
  Report Type: Report from Study
  Country: FR (occurrence: FR)
  Receive Date: 20180126
  Receipt Date: 20180921
  Transmission Date: 20181010
  Serious: Yes (Death, Life-Threatening, Hospitalization, Other)
  Sender: FDA-Public Use
  Company Number: FR-BRISTOL-MYERS SQUIBB COMPANY-BMS-2017-085104

PATIENT
  Age: 74 Year
  Sex: Male

DRUGS (5)
  1. NIVOLUMAB [Suspect]
     Active Substance: NIVOLUMAB
     Indication: LUNG NEOPLASM MALIGNANT
     Dosage: 190 MG,EVERY 15 DAYS
     Route: 042
     Dates: start: 20170707, end: 20171013
  2. FERINJECT [Concomitant]
     Active Substance: FERRIC CARBOXYMALTOSE
     Indication: PRODUCT USED FOR UNKNOWN INDICATION
     Dosage: UNK, PRN
     Route: 065
  3. SOMATOSTATINE                      /00603101/ [Concomitant]
     Indication: PRODUCT USED FOR UNKNOWN INDICATION
     Dosage: UNK
     Route: 042
  4. SOMATULINE                         /01330101/ [Concomitant]
     Active Substance: LANREOTIDE ACETATE
     Indication: PRODUCT USED FOR UNKNOWN INDICATION
     Dosage: UNK
     Route: 065
  5. IMODIUM [Concomitant]
     Active Substance: LOPERAMIDE HYDROCHLORIDE
     Indication: PRODUCT USED FOR UNKNOWN INDICATION
     Route: 065

REACTIONS (14)
  - Electrolyte imbalance [Unknown]
  - Acute kidney injury [Unknown]
  - Malignant neoplasm progression [Fatal]
  - Skin toxicity [Not Recovered/Not Resolved]
  - Diarrhoea [Recovered/Resolved]
  - Anaemia [Not Recovered/Not Resolved]
  - Skin lesion [Not Recovered/Not Resolved]
  - Vomiting [Recovered/Resolved]
  - Hypokalaemia [Unknown]
  - Weight decreased [Unknown]
  - Dyspnoea [Unknown]
  - Cough [Not Recovered/Not Resolved]
  - Herpes zoster [Unknown]
  - Rales [Unknown]

NARRATIVE: CASE EVENT DATE: 201708
